FAERS Safety Report 7059035-5 (Version None)
Quarter: 2010Q4

REPORT INFORMATION
  Report Type: 
  Country: None (occurrence: None)
  Receive Date: 20101025
  Receipt Date: 20101014
  Transmission Date: 20110411
  Serious: Yes (Hospitalization)
  Sender: FDA-Public Use
  Company Number: US-BIOGENIDEC-2010BI036416

PATIENT
  Age: 58 Year
  Sex: Male

DRUGS (3)
  1. AVONEX [Suspect]
     Indication: MULTIPLE SCLEROSIS
     Route: 030
     Dates: start: 19980911, end: 20071112
  2. AVONEX [Suspect]
     Route: 030
     Dates: start: 20080907
  3. OXYCONTIN [Concomitant]
     Indication: BACK PAIN

REACTIONS (2)
  - CYST [None]
  - FATIGUE [None]
